FAERS Safety Report 11819444 (Version 1)
Quarter: 2015Q4

REPORT INFORMATION
  Report Type: Spontaneous
  Country: US (occurrence: None)
  Receive Date: 20151209
  Receipt Date: 20151209
  Transmission Date: 20160305
  Serious: No
  Sender: FDA-Public Use
  Company Number: None

PATIENT
  Age: 56 Year
  Sex: Female

DRUGS (18)
  1. ACTHAR [Suspect]
     Active Substance: CORTICOTROPIN
     Indication: NEPHROTIC SYNDROME
     Dosage: 80 UNITS, Q72HR
     Route: 058
     Dates: start: 201501
  2. NOVOLOG [Concomitant]
     Active Substance: INSULIN ASPART
  3. CIPROFLOXACIN. [Concomitant]
     Active Substance: CIPROFLOXACIN
  4. HYDRALAZINE [Concomitant]
     Active Substance: HYDRALAZINE HYDROCHLORIDE
  5. TRADJENTA [Concomitant]
     Active Substance: LINAGLIPTIN
  6. SOD BICARB [Concomitant]
  7. NIFEDIPINE. [Concomitant]
     Active Substance: NIFEDIPINE
  8. GLIPIZIDE. [Concomitant]
     Active Substance: GLIPIZIDE
  9. OMEPRAZOLE. [Concomitant]
     Active Substance: OMEPRAZOLE
  10. VITAMIN D [Concomitant]
     Active Substance: CHOLECALCIFEROL
  11. ALLOPURINOL. [Concomitant]
     Active Substance: ALLOPURINOL
  12. LACTULOSE. [Concomitant]
     Active Substance: LACTULOSE
  13. METOCLOPRAM [Concomitant]
     Active Substance: METOCLOPRAMIDE
  14. RANITIDINE [Concomitant]
     Active Substance: RANITIDINE\RANITIDINE HYDROCHLORIDE
  15. RESTASIS [Concomitant]
     Active Substance: CYCLOSPORINE
  16. ACYCLOVIR. [Concomitant]
     Active Substance: ACYCLOVIR
  17. INSULIN [Concomitant]
     Active Substance: INSULIN NOS
  18. LEVOTHYROXIN [Concomitant]
     Active Substance: LEVOTHYROXINE

REACTIONS (1)
  - Fatigue [None]
